FAERS Safety Report 4839279-0 (Version None)
Quarter: 2005Q4

REPORT INFORMATION
  Report Type: 
  Country: None (occurrence: None)
  Receive Date: 20051129
  Receipt Date: 20041115
  Transmission Date: 20060501
  Serious: No
  Sender: FDA-Public Use
  Company Number: 2004-04856

PATIENT
  Age: 64 Year
  Sex: Male
  Weight: 66.8 kg

DRUGS (7)
  1. BUPROPION HCL [Suspect]
     Dosage: 150MG PER DAY
     Route: 048
     Dates: start: 20041024
  2. NICOTINE GUM [Concomitant]
     Dosage: 2MG UNKNOWN
     Route: 048
     Dates: start: 20041110
  3. LIPITOR [Concomitant]
     Indication: BLOOD CHOLESTEROL INCREASED
     Route: 048
  4. POTASSIUM [Concomitant]
     Route: 048
  5. TAGAMET [Concomitant]
     Indication: DUODENAL ULCER
     Route: 048
  6. IMODIUM [Concomitant]
     Indication: COLITIS
     Route: 048
  7. UNSPECIFIED MEDICATION [Concomitant]
     Indication: HYPERTENSION
     Route: 048

REACTIONS (7)
  - ABNORMAL DREAMS [None]
  - ANXIETY [None]
  - MEMORY IMPAIRMENT [None]
  - MUSCLE SPASMS [None]
  - MUSCLE TWITCHING [None]
  - POLLAKIURIA [None]
  - TREMOR [None]
